FAERS Safety Report 4498515-3 (Version None)
Quarter: 2004Q4

REPORT INFORMATION
  Report Type: 
  Country: None (occurrence: None)
  Receive Date: 20041105
  Receipt Date: 20041027
  Transmission Date: 20050328
  Serious: Yes (Death)
  Sender: FDA-Public Use
  Company Number: S04-USA-07132-01

PATIENT
  Sex: 0

DRUGS (2)
  1. LEXAPRO [Suspect]
  2. DEMEROL [Suspect]

REACTIONS (3)
  - DRUG INTERACTION [None]
  - DRUG LEVEL INCREASED [None]
  - RESPIRATORY FAILURE [None]
